FAERS Safety Report 9237636 (Version 2)
Quarter: 2013Q2

REPORT INFORMATION
  Report Type: Spontaneous
  Country: US (occurrence: US)
  Receive Date: 20130418
  Receipt Date: 20130501
  Transmission Date: 20140414
  Serious: Yes (Death, Hospitalization)
  Sender: FDA-Public Use
  Company Number: US-BIOGENIDEC-2013BI033120

PATIENT
  Age: 59 Year
  Sex: Female

DRUGS (1)
  1. AVONEX [Suspect]
     Indication: MULTIPLE SCLEROSIS
     Route: 030
     Dates: start: 20110927, end: 20120907

REACTIONS (5)
  - Decubitus ulcer [Unknown]
  - Urinary tract infection [Unknown]
  - Lung infection [Fatal]
  - Toxic shock syndrome [Fatal]
  - Pneumonia [Fatal]
